FAERS Safety Report 7971124-7 (Version None)
Quarter: 2011Q4

REPORT INFORMATION
  Report Type: 
  Country: None (occurrence: None)
  Receive Date: 20111122
  Receipt Date: 20110826
  Transmission Date: 20120403
  Serious: No
  Sender: FDA-Public Use
  Company Number: PHEH2011US02930

PATIENT
  Age: 56 Year
  Sex: Female
  Weight: 67 kg

DRUGS (4)
  1. LAXATIVES (NO INGREDIENTS/SUBSTANCES) [Concomitant]
  2. GILENYA [Suspect]
     Indication: RELAPSING-REMITTING MULTIPLE SCLEROSIS
     Dosage: 0.5 MG, QOD, ORAL
     Route: 048
     Dates: start: 20100901
  3. DONEPEZIL HCL [Concomitant]
  4. WELLBUTRIN [Concomitant]

REACTIONS (4)
  - BURNING SENSATION [None]
  - PARAESTHESIA [None]
  - BALANCE DISORDER [None]
  - HYPOAESTHESIA [None]
